FAERS Safety Report 19381930 (Version 4)
Quarter: 2023Q1

REPORT INFORMATION
  Report Type: Spontaneous
  Country: FR (occurrence: FR)
  Receive Date: 20210607
  Receipt Date: 20230111
  Transmission Date: 20230417
  Serious: Yes (Hospitalization, Disabling, Other)
  Sender: FDA-Public Use
  Company Number: NVSC2021FR121959

PATIENT
  Sex: Female

DRUGS (12)
  1. OFLOXACIN [Suspect]
     Active Substance: OFLOXACIN
     Indication: Infectious disease carrier
     Dosage: 400 MG, BID
     Route: 065
     Dates: start: 20110614, end: 20110722
  2. FENTANYL [Concomitant]
     Active Substance: FENTANYL
     Indication: Product used for unknown indication
     Dosage: 100 UG (EACH 72 HOURS)
     Route: 065
  3. ZOPICLONE [Concomitant]
     Active Substance: ZOPICLONE
     Indication: Product used for unknown indication
     Dosage: 7.5 MG, QD (DAILY, IN THE EVENING)
     Route: 065
  4. BROMAZEPAM [Concomitant]
     Active Substance: BROMAZEPAM
     Indication: Product used for unknown indication
     Dosage: 6 MG, QD (IN THE EVENING)
     Route: 065
  5. CYMBALTA [Concomitant]
     Active Substance: DULOXETINE HYDROCHLORIDE
     Indication: Product used for unknown indication
     Dosage: 30 MG (2 IN THE MORNING, 1 IN THE EVENING)
     Route: 065
  6. AMITRIPTYLINE HYDROCHLORIDE [Concomitant]
     Active Substance: AMITRIPTYLINE HYDROCHLORIDE
     Indication: Product used for unknown indication
     Dosage: 25 MG, QD (IN THE MORNING)
     Route: 065
  7. ESOMEPRAZOLE [Concomitant]
     Active Substance: ESOMEPRAZOLE
     Indication: Product used for unknown indication
     Dosage: 40 MG (4 IN THE MORNING, 4 DURING THE DAY, 4 IN THE EVENING)
     Route: 065
  8. GABAPENTIN [Concomitant]
     Active Substance: GABAPENTIN
     Indication: Product used for unknown indication
     Dosage: 300 MG (CREAM AND POWDER)
     Route: 065
  9. ECONAZOLE [Concomitant]
     Active Substance: ECONAZOLE
     Indication: Product used for unknown indication
     Dosage: UNK
     Route: 065
  10. BACTRIM [Concomitant]
     Active Substance: SULFAMETHOXAZOLE\TRIMETHOPRIM
     Indication: Product used for unknown indication
     Dosage: 2 DOSAGE FORM, QD (2 TABLETS DAILY)
     Route: 065
  11. METHOTREXATE [Concomitant]
     Active Substance: METHOTREXATE
     Indication: Product used for unknown indication
     Dosage: UNK
     Route: 065
  12. CEFTRIAXONE SODIUM [Suspect]
     Active Substance: CEFTRIAXONE SODIUM
     Indication: Product used for unknown indication
     Route: 065

REACTIONS (26)
  - Sciatica [Unknown]
  - Sjogren^s syndrome [Unknown]
  - Arthralgia [Unknown]
  - Pain [Unknown]
  - Pyelonephritis [Unknown]
  - Pyelonephritis acute [Unknown]
  - Back pain [Unknown]
  - Bone pain [Unknown]
  - Telangiectasia [Unknown]
  - Antinuclear antibody positive [Unknown]
  - Bronchitis bacterial [Unknown]
  - CREST syndrome [Unknown]
  - Hypersomnia [Unknown]
  - Paraplegia [Unknown]
  - Paraparesis [Unknown]
  - Urinary incontinence [Unknown]
  - Cauda equina syndrome [Unknown]
  - Mixed connective tissue disease [Unknown]
  - Scleroderma [Unknown]
  - Tendon disorder [Unknown]
  - Rotator cuff syndrome [Unknown]
  - Anal incontinence [Unknown]
  - Piriformis syndrome [Unknown]
  - Weight increased [Unknown]
  - General physical health deterioration [Unknown]
  - Tendonitis [Unknown]

NARRATIVE: CASE EVENT DATE: 20110701
